FAERS Safety Report 6242523-9 (Version None)
Quarter: 2009Q2

REPORT INFORMATION
  Report Type: 
  Country: None (occurrence: None)
  Receive Date: 20090624
  Receipt Date: 20090616
  Transmission Date: 20091009
  Serious: Yes (Other)
  Sender: FDA-Public Use
  Company Number: US-ROCHE-638829

PATIENT
  Age: 85 Year
  Sex: Female

DRUGS (1)
  1. BONIVA [Suspect]
     Indication: OSTEOPOROSIS
     Route: 048
     Dates: start: 20050101

REACTIONS (3)
  - GINGIVAL RECESSION [None]
  - SHOULDER ARTHROPLASTY [None]
  - TOOTH FRACTURE [None]
